FAERS Safety Report 18793622 (Version 3)
Quarter: 2021Q1

REPORT INFORMATION
  Report Type: Spontaneous
  Country: US (occurrence: US)
  Receive Date: 20210127
  Receipt Date: 20210130
  Transmission Date: 20210419
  Serious: Yes (Hospitalization, Other)
  Sender: FDA-Public Use
  Company Number: US-SA-2021SA024295

PATIENT
  Age: 74 Year
  Sex: Male

DRUGS (1)
  1. LANTUS [Suspect]
     Active Substance: INSULIN GLARGINE
     Indication: TYPE 2 DIABETES MELLITUS
     Dosage: 50 IU, BID
     Route: 065
     Dates: start: 2006

REACTIONS (7)
  - Inappropriate schedule of product administration [Unknown]
  - Device defective [Unknown]
  - Product storage error [Unknown]
  - Blood glucose increased [Unknown]
  - Drug dose omission by device [Unknown]
  - Neck surgery [Unknown]
  - Hemiparesis [Unknown]

NARRATIVE: CASE EVENT DATE: 2006
